FAERS Safety Report 9878833 (Version 2)
Quarter: 2014Q1

REPORT INFORMATION
  Report Type: Spontaneous
  Country: NL (occurrence: NL)
  Receive Date: 20140206
  Receipt Date: 20140219
  Transmission Date: 20141002
  Serious: Yes (Hospitalization)
  Sender: FDA-Public Use
  Company Number: NL-GLAXOSMITHKLINE-B0966764A

PATIENT
  Age: 36 Year
  Sex: Female

DRUGS (3)
  1. LAMOTRIGINE [Suspect]
     Indication: EPILEPSY
     Dosage: 50MG THREE TIMES PER DAY
     Route: 048
     Dates: start: 2000
  2. ARTHROTEC [Suspect]
     Indication: PAIN IN JAW
     Dosage: 50MG TWICE PER DAY
     Route: 048
     Dates: start: 20140128, end: 20140129
  3. LEVETIRACETAM [Suspect]
     Indication: EPILEPSY
     Dosage: 100MG THREE TIMES PER DAY
     Route: 048
     Dates: start: 2000

REACTIONS (2)
  - Dystonia [Recovered/Resolved]
  - Drug interaction [Recovered/Resolved]
